FAERS Safety Report 4294269-4 (Version None)
Quarter: 2004Q1

REPORT INFORMATION
  Report Type: 
  Country: None (occurrence: None)
  Receive Date: 20040211
  Receipt Date: 20030731
  Transmission Date: 20041129
  Serious: No
  Sender: FDA-Public Use
  Company Number: US-GLAXOSMITHKLINE-A0419714A

PATIENT
  Sex: Female

DRUGS (8)
  1. LAMICTAL [Suspect]
     Indication: EPILEPSY
     Dosage: 300MG THREE TIMES PER DAY
     Route: 048
  2. CRYSTALLOID [Suspect]
  3. MIRALAX [Suspect]
     Route: 065
  4. ACIPHEX [Concomitant]
  5. GLUCOSAMINE [Concomitant]
  6. CITRUCEL [Concomitant]
  7. CALCIUM [Concomitant]
  8. COLACE [Concomitant]

REACTIONS (2)
  - ANTICONVULSANT DRUG LEVEL BELOW THERAPEUTIC [None]
  - DRUG INTERACTION [None]
